FAERS Safety Report 10164022 (Version 1)
Quarter: 2014Q2

REPORT INFORMATION
  Report Type: Spontaneous
  Country: US (occurrence: US)
  Receive Date: 20140510
  Receipt Date: 20140510
  Transmission Date: 20141212
  Serious: No
  Sender: FDA-Public Use
  Company Number: US-BRISTOL-MYERS SQUIBB COMPANY-19824382

PATIENT
  Age: 56 Year
  Sex: Female
  Weight: 113.38 kg

DRUGS (2)
  1. BYETTA [Suspect]
     Indication: TYPE 2 DIABETES MELLITUS
     Dosage: INITIAL DOSE 5MCG,THEN INCREASED TO 10MCG
     Route: 058
     Dates: start: 2012
  2. METFORMIN HCL [Suspect]

REACTIONS (2)
  - Abdominal distension [Recovering/Resolving]
  - Decreased appetite [Recovered/Resolved]
